FAERS Safety Report 9743666 (Version 1)
Quarter: 2013Q4

REPORT INFORMATION
  Report Type: Spontaneous
  Country: US (occurrence: US)
  Receive Date: 20131210
  Receipt Date: 20131210
  Transmission Date: 20140711
  Serious: No
  Sender: FDA-Public Use
  Company Number: US-BIOGENIDEC-2013BI093496

PATIENT
  Age: 55 Year
  Sex: Male

DRUGS (1)
  1. TECFIDERA [Suspect]
     Indication: MULTIPLE SCLEROSIS
     Route: 048
     Dates: start: 201306

REACTIONS (6)
  - Anger [Recovered/Resolved]
  - Frustration [Recovered/Resolved]
  - Anaemia [Unknown]
  - Loss of control of legs [Unknown]
  - Gait disturbance [Unknown]
  - Multiple sclerosis relapse [Unknown]
